FAERS Safety Report 4798235-1 (Version None)
Quarter: 2005Q4

REPORT INFORMATION
  Report Type: 
  Country: None (occurrence: None)
  Receive Date: 20051011
  Receipt Date: 20051011
  Transmission Date: 20060501
  Serious: No
  Sender: FDA-Public Use
  Company Number: None

PATIENT
  Age: 62 Year
  Sex: Male
  Weight: 118.3888 kg

DRUGS (2)
  1. TRICOR [Suspect]
     Dosage: 145MG PO QD
     Route: 048
     Dates: start: 20050901, end: 20051001
  2. LOPID [Suspect]
     Dosage: 600MG BID PO
     Route: 048
     Dates: start: 20051006, end: 20051010

REACTIONS (3)
  - BLOOD GLUCOSE INCREASED [None]
  - C-REACTIVE PROTEIN INCREASED [None]
  - MYALGIA [None]
